FAERS Safety Report 12690688 (Version 2)
Quarter: 2016Q4

REPORT INFORMATION
  Report Type: Spontaneous
  Country: US (occurrence: US)
  Receive Date: 20160826
  Receipt Date: 20161206
  Transmission Date: 20170207
  Serious: Yes (Hospitalization, Other)
  Sender: FDA-Public Use
  Company Number: US-ELI_LILLY_AND_COMPANY-US201608011982

PATIENT
  Age: 33 Year
  Sex: Female

DRUGS (11)
  1. PROZAC [Suspect]
     Active Substance: FLUOXETINE HYDROCHLORIDE
     Indication: DEPRESSION
  2. PRENATAL VITAMINS                  /02014401/ [Concomitant]
     Active Substance: VITAMINS
     Dosage: UNK UNK, QD
     Route: 048
  3. DARVOCET-N 100 [Concomitant]
     Active Substance: ACETAMINOPHEN\PROPOXYPHENE NAPSYLATE
     Indication: HEADACHE
     Dosage: UNK UNK, UNKNOWN
  4. AMPICILLIN [Concomitant]
     Active Substance: AMPICILLIN
     Dosage: UNK, UNKNOWN
  5. PROZAC [Suspect]
     Active Substance: FLUOXETINE HYDROCHLORIDE
     Indication: GENERALISED ANXIETY DISORDER
     Dosage: 20 MG, QD
     Route: 048
  6. COLACE [Concomitant]
     Active Substance: DOCUSATE SODIUM
     Dosage: UNK UNK, BID
     Route: 048
  7. IRON [Concomitant]
     Active Substance: IRON
     Dosage: UNK UNK, QD
     Route: 048
  8. DDAVP [Concomitant]
     Active Substance: DESMOPRESSIN ACETATE
     Indication: PREMEDICATION
     Dosage: UNK UNK, UNKNOWN
     Route: 042
  9. ZITHROMAX [Concomitant]
     Active Substance: AZITHROMYCIN DIHYDRATE
     Dosage: 250 MG, QD
     Route: 048
  10. CELESTONE [Concomitant]
     Active Substance: BETAMETHASONE
     Dosage: 12.5 MG, QD
     Route: 030
  11. TERBUTALINE [Concomitant]
     Active Substance: TERBUTALINE
     Indication: TOCOLYSIS
     Dosage: UNK, UNKNOWN

REACTIONS (4)
  - Exposure during pregnancy [Recovered/Resolved]
  - Preterm premature rupture of membranes [Unknown]
  - Oligohydramnios [Unknown]
  - Premature labour [Unknown]

NARRATIVE: CASE EVENT DATE: 20040209
